FAERS Safety Report 7112904-X (Version None)
Quarter: 2010Q4

REPORT INFORMATION
  Report Type: 
  Country: None (occurrence: None)
  Receive Date: 20101119
  Receipt Date: 20100525
  Transmission Date: 20110411
  Serious: No
  Sender: FDA-Public Use
  Company Number: US-BRISTOL-MYERS SQUIBB COMPANY-15118821

PATIENT
  Age: 65 Year
  Sex: Male
  Weight: 113 kg

DRUGS (3)
  1. AVALIDE [Suspect]
     Indication: HYPERTENSION
     Dosage: DRUG STARTED 1MONTH AGO.
  2. DILANTIN [Concomitant]
  3. TEGRETOL [Concomitant]

REACTIONS (3)
  - DRY SKIN [None]
  - PRURITUS [None]
  - URTICARIA [None]
